FAERS Safety Report 15144543 (Version 3)
Quarter: 2019Q1

REPORT INFORMATION
  Report Type: Spontaneous
  Country: US (occurrence: US)
  Receive Date: 20180713
  Receipt Date: 20190110
  Transmission Date: 20190417
  Serious: No
  Sender: FDA-Public Use
  Company Number: US-NOVOPROD-607681

PATIENT
  Age: 41 Year
  Sex: Male

DRUGS (1)
  1. FIASP [Suspect]
     Active Substance: INSULIN ASPART
     Indication: TYPE 1 DIABETES MELLITUS
     Dosage: 20 U, QID
     Route: 058
     Dates: start: 201802

REACTIONS (3)
  - Drug ineffective [Recovered/Resolved]
  - Product quality issue [Recovered/Resolved]
  - Blood glucose increased [Recovered/Resolved]

NARRATIVE: CASE EVENT DATE: 20180621
